FAERS Safety Report 9201805 (Version 1)
Quarter: 2013Q2

REPORT INFORMATION
  Report Type: Report from Study
  Country: DE (occurrence: DE)
  Receive Date: 20130401
  Receipt Date: 20130401
  Transmission Date: 20140414
  Serious: Yes (Death, Hospitalization)
  Sender: FDA-Public Use
  Company Number: DE-ROCHE-1193614

PATIENT
  Age: 73 Year
  Sex: Male
  Weight: 82 kg

DRUGS (12)
  1. METHOXY POLYETHYLENE GLYCOL-EPOETIN BETA [Suspect]
     Indication: NEPHROGENIC ANAEMIA
     Dosage: LAST DOSE PRIOR TO SAE: 13/DEC/2010
     Route: 042
     Dates: start: 20100920
  2. HEPARIN SODIUM [Concomitant]
     Route: 065
  3. CALCIUM ACETATE [Concomitant]
     Route: 065
  4. DREISAVIT [Concomitant]
     Route: 065
  5. RESTEX RETARD [Concomitant]
     Route: 065
  6. METO-SUCCINAT [Concomitant]
     Route: 065
  7. PANTOPRAZOL [Concomitant]
     Route: 065
  8. NITRENDIPIN [Concomitant]
     Dosage: NITRENDIPIN DURA
     Route: 065
  9. RESONIUM A [Concomitant]
     Route: 065
  10. TILIDIN [Concomitant]
     Dosage: DRUG: TILIDIN ABZ
     Route: 065
  11. DEKRISTOL [Concomitant]
     Route: 048
  12. NORSPAN [Concomitant]
     Route: 062

REACTIONS (5)
  - General physical health deterioration [Fatal]
  - Staphylococcal sepsis [Fatal]
  - Cerebral amyloid angiopathy [Fatal]
  - Hypotension [Unknown]
  - Decubitus ulcer [Unknown]
